FAERS Safety Report 6533959-7 (Version None)
Quarter: 2010Q1

REPORT INFORMATION
  Report Type: 
  Country: None (occurrence: None)
  Receive Date: 20100108
  Receipt Date: 20100108
  Transmission Date: 20100710
  Serious: Yes (Life-Threatening, Hospitalization, Other)
  Sender: FDA-Public Use
  Company Number: None

PATIENT
  Age: 44 Year
  Sex: Male
  Weight: 112.9457 kg

DRUGS (1)
  1. HUMIRA [Suspect]

REACTIONS (2)
  - MYELODYSPLASTIC SYNDROME [None]
  - MYELOFIBROSIS [None]
